FAERS Safety Report 8912069 (Version 1)
Quarter: 2012Q4

REPORT INFORMATION
  Report Type: 
  Country: GB (occurrence: GB)
  Receive Date: 20121116
  Receipt Date: 20121116
  Transmission Date: 20130627
  Serious: Yes (Other)
  Sender: FDA-Public Use
  Company Number: GB-TEVA-369503ISR

PATIENT
  Age: 14 Year
  Sex: Female

DRUGS (1)
  1. METOCLOPRAMIDE [Suspect]
     Indication: NAUSEA
     Route: 048
     Dates: start: 20121025, end: 20121027

REACTIONS (4)
  - Dystonia [Recovered/Resolved]
  - Ophthalmoplegia [Recovered/Resolved]
  - Eye movement disorder [Recovered/Resolved]
  - Muscle contracture [Recovered/Resolved]
